FAERS Safety Report 17802785 (Version 11)
Quarter: 2025Q1

REPORT INFORMATION
  Report Type: Report from Study
  Country: CA (occurrence: CA)
  Receive Date: 20200519
  Receipt Date: 20250314
  Transmission Date: 20250409
  Serious: Yes (Other)
  Sender: ROCHE
  Company Number: CA-ROCHE-1445189

PATIENT
  Age: 29 Year
  Sex: Female
  Weight: 90 kg

DRUGS (32)
  1. ACTEMRA [Suspect]
     Active Substance: TOCILIZUMAB
     Indication: Rheumatoid arthritis
     Route: 042
     Dates: start: 20140624, end: 20160614
  2. ACTEMRA [Suspect]
     Active Substance: TOCILIZUMAB
     Dosage: ONGOING
     Route: 042
     Dates: start: 20160712
  3. ACTEMRA [Suspect]
     Active Substance: TOCILIZUMAB
     Route: 042
     Dates: start: 20220901
  4. ACTEMRA [Suspect]
     Active Substance: TOCILIZUMAB
     Route: 042
  5. ACTEMRA [Suspect]
     Active Substance: TOCILIZUMAB
     Route: 042
  6. ACTEMRA [Suspect]
     Active Substance: TOCILIZUMAB
     Route: 042
  7. ACTEMRA [Suspect]
     Active Substance: TOCILIZUMAB
     Route: 042
  8. ACTEMRA [Suspect]
     Active Substance: TOCILIZUMAB
     Route: 042
  9. ACTEMRA [Suspect]
     Active Substance: TOCILIZUMAB
     Route: 042
  10. ACTEMRA [Suspect]
     Active Substance: TOCILIZUMAB
     Route: 042
  11. ACTEMRA [Suspect]
     Active Substance: TOCILIZUMAB
     Route: 042
  12. ACTEMRA [Suspect]
     Active Substance: TOCILIZUMAB
     Route: 042
  13. ACTEMRA [Suspect]
     Active Substance: TOCILIZUMAB
     Route: 042
  14. ACTEMRA [Suspect]
     Active Substance: TOCILIZUMAB
     Route: 042
  15. ACTEMRA [Suspect]
     Active Substance: TOCILIZUMAB
     Route: 042
  16. ACTEMRA [Suspect]
     Active Substance: TOCILIZUMAB
     Route: 042
  17. ACTEMRA [Suspect]
     Active Substance: TOCILIZUMAB
     Route: 042
  18. ACTEMRA [Suspect]
     Active Substance: TOCILIZUMAB
     Route: 042
  19. ACTEMRA [Suspect]
     Active Substance: TOCILIZUMAB
     Route: 042
  20. ACTEMRA [Suspect]
     Active Substance: TOCILIZUMAB
     Route: 042
  21. ACTEMRA [Suspect]
     Active Substance: TOCILIZUMAB
     Route: 042
  22. ACTEMRA [Suspect]
     Active Substance: TOCILIZUMAB
     Route: 042
  23. ACTEMRA [Suspect]
     Active Substance: TOCILIZUMAB
     Route: 042
  24. ACTEMRA [Suspect]
     Active Substance: TOCILIZUMAB
     Route: 042
  25. ACTEMRA [Suspect]
     Active Substance: TOCILIZUMAB
     Route: 042
  26. NAPROXEN [Concomitant]
     Active Substance: NAPROXEN
     Indication: Product used for unknown indication
     Route: 048
  27. TYLENOL [Concomitant]
     Active Substance: ACETAMINOPHEN
  28. ADVIL [Concomitant]
     Active Substance: IBUPROFEN
  29. METHOTREXATE [Concomitant]
     Active Substance: METHOTREXATE
  30. ACETAMINOPHEN [Concomitant]
     Active Substance: ACETAMINOPHEN
  31. ACETAMINOPHEN\CODEINE PHOSPHATE [Concomitant]
     Active Substance: ACETAMINOPHEN\CODEINE PHOSPHATE
     Indication: Pain
     Route: 048
  32. Ascorbic acid-vitamin E-biotin (Hair, Skin, Nails with Biotin) [Concomitant]
     Dosage: 7.5-7.5-1,250 MG-UNIT-MCG
     Route: 048

REACTIONS (20)
  - Nasopharyngitis [Recovered/Resolved]
  - Infusion related reaction [Recovered/Resolved]
  - Weight increased [Unknown]
  - Weight decreased [Not Recovered/Not Resolved]
  - Endodontic procedure [Unknown]
  - Weight decreased [Unknown]
  - Rheumatoid nodule [Recovered/Resolved]
  - Weight increased [Unknown]
  - Arthralgia [Unknown]
  - Dental caries [Unknown]
  - Pain [Unknown]
  - Blood pressure increased [Recovered/Resolved]
  - Abdominal pain [Recovered/Resolved]
  - Hypoaesthesia [Unknown]
  - Contusion [Unknown]
  - Heart rate decreased [Recovered/Resolved]
  - Infection [Recovering/Resolving]
  - Blood pressure diastolic decreased [Unknown]
  - Dental caries [Recovered/Resolved]
  - Malaise [Unknown]

NARRATIVE: CASE EVENT DATE: 20140725
